FAERS Safety Report 11151677 (Version 1)
Quarter: 2015Q2

REPORT INFORMATION
  Report Type: Spontaneous
  Country: RO (occurrence: RO)
  Receive Date: 20150601
  Receipt Date: 20150601
  Transmission Date: 20150821
  Serious: Yes (Life-Threatening, Hospitalization, Other)
  Sender: FDA-Public Use
  Company Number: RO-ABBVIE-15K-135-1400487-00

PATIENT
  Age: 23 Year
  Sex: Male
  Weight: 67 kg

DRUGS (1)
  1. HUMIRA [Suspect]
     Active Substance: ADALIMUMAB
     Indication: PSORIASIS
     Route: 058
     Dates: start: 201403, end: 201503

REACTIONS (6)
  - Tuberculous pleurisy [Recovered/Resolved]
  - Pericarditis tuberculous [Recovered/Resolved]
  - Cardiac tamponade [Recovered/Resolved]
  - Tuberculosis liver [Unknown]
  - Pyrexia [Recovered/Resolved]
  - Pulmonary tuberculosis [Recovered/Resolved]

NARRATIVE: CASE EVENT DATE: 20150218
